FAERS Safety Report 19307541 (Version 1)
Quarter: 2021Q2

REPORT INFORMATION
  Report Type: Report from Study
  Country: ES (occurrence: ES)
  Receive Date: 20210526
  Receipt Date: 20210526
  Transmission Date: 20210717
  Serious: Yes (Other)
  Sender: FDA-Public Use
  Company Number: ES-MYLANLABS-2021M1030876

PATIENT
  Age: 71 Year
  Sex: Male
  Weight: 67 kg

DRUGS (16)
  1. ENVARSUS XR [Suspect]
     Active Substance: TACROLIMUS
     Indication: IMMUNOSUPPRESSION
     Dosage: 1.5 MILLIGRAM, QD
     Route: 048
     Dates: start: 20200115, end: 20200212
  2. ENVARSUS XR [Suspect]
     Active Substance: TACROLIMUS
     Dosage: 4 MILLIGRAM, QD
     Route: 048
     Dates: start: 20200106, end: 20200108
  3. BASILIXIMAB [Suspect]
     Active Substance: BASILIXIMAB
     Indication: IMMUNOSUPPRESSION
     Dosage: 20 MILLIGRAM, QD
     Route: 065
     Dates: start: 20200104, end: 20200104
  4. ACETYLSALICYLIC ACID [Concomitant]
     Active Substance: ASPIRIN
     Indication: CARDIOVASCULAR EVENT PROPHYLAXIS
     Dosage: UNK
     Route: 065
     Dates: start: 20190710
  5. CICLOSPORIN [Concomitant]
     Active Substance: CYCLOSPORINE
     Indication: PRODUCT USED FOR UNKNOWN INDICATION
     Dosage: UNK
     Route: 065
     Dates: start: 20200217
  6. CALCITRIOL. [Concomitant]
     Active Substance: CALCITRIOL
     Indication: VITAMIN D DEFICIENCY
     Dosage: UNK
     Route: 065
     Dates: start: 20200115
  7. MYCOPHENOLATE MOFETIL. [Suspect]
     Active Substance: MYCOPHENOLATE MOFETIL
     Indication: IMMUNOSUPPRESSION
     Dosage: 1000 MILLIGRAM, QD
     Route: 065
     Dates: start: 20200104, end: 20200105
  8. ENVARSUS XR [Suspect]
     Active Substance: TACROLIMUS
     Dosage: 2 MILLIGRAM, QD
     Route: 048
     Dates: start: 20200110, end: 20200114
  9. COTRIMOXAZOLE [Concomitant]
     Active Substance: SULFAMETHOXAZOLE\TRIMETHOPRIM
     Indication: ANTIBIOTIC PROPHYLAXIS
     Dosage: UNK
     Route: 065
     Dates: start: 20200115
  10. BASILIXIMAB [Suspect]
     Active Substance: BASILIXIMAB
     Dosage: 20 MILLIGRAM, QD
     Route: 065
     Dates: start: 20200108, end: 20200108
  11. ENVARSUS XR [Suspect]
     Active Substance: TACROLIMUS
     Dosage: 1.75 MILLIGRAM, QD
     Route: 048
     Dates: start: 20200213, end: 20200216
  12. AMLODIPINE KN [Concomitant]
     Indication: HYPERTENSION
     Dosage: UNK
     Route: 065
     Dates: start: 20200115
  13. MYCOPHENOLATE MOFETIL. [Suspect]
     Active Substance: MYCOPHENOLATE MOFETIL
     Dosage: 2000 MILLIGRAM, QD
     Route: 065
     Dates: start: 20200106
  14. ENVARSUS XR [Suspect]
     Active Substance: TACROLIMUS
     Dosage: 3 MILLIGRAM
     Route: 065
     Dates: start: 20200109, end: 20200109
  15. OMEPRAZOLE. [Concomitant]
     Active Substance: OMEPRAZOLE
     Indication: PROPHYLAXIS AGAINST GASTROINTESTINAL ULCER
     Dosage: UNK
     Route: 065
     Dates: start: 20190712
  16. ISONIAZID W/PYRIDOXINE [Concomitant]
     Active Substance: ISONIAZID\PYRIDOXINE
     Indication: INFECTION PROPHYLAXIS
     Dosage: UNK
     Route: 065
     Dates: start: 20200115

REACTIONS (4)
  - Glomerulosclerosis [Recovered/Resolved with Sequelae]
  - Renal tubular injury [Recovered/Resolved]
  - Toxicity to various agents [Recovered/Resolved]
  - Renal tubular necrosis [Recovered/Resolved]

NARRATIVE: CASE EVENT DATE: 20200127
